FAERS Safety Report 7585792-5 (Version None)
Quarter: 2011Q2

REPORT INFORMATION
  Report Type: 
  Country: None (occurrence: None)
  Receive Date: 20110629
  Receipt Date: 20110629
  Transmission Date: 20111010
  Serious: Yes (Other)
  Sender: FDA-Public Use
  Company Number: None

PATIENT
  Sex: Male
  Weight: 122.4712 kg

DRUGS (11)
  1. ZOLOFT [Concomitant]
  2. CEFTRIAXONE [Concomitant]
  3. SODIUM CHLORIDE INJ [Concomitant]
  4. PROZAC [Concomitant]
  5. VICODIN [Concomitant]
  6. ATRIPLIA [Concomitant]
  7. VANCOMYCIN [Suspect]
     Indication: ABSCESS LIMB
     Dosage: 1G EVERY 12 HOURS
     Dates: start: 20110527, end: 20110616
  8. HEPARIN LOCK-FLUSH [Concomitant]
  9. LIPITOR [Concomitant]
  10. ECONOZOLE CREAM [Concomitant]
  11. NAFTIN [Concomitant]

REACTIONS (1)
  - RASH [None]
